FAERS Safety Report 14187722 (Version 1)
Quarter: 2017Q4

REPORT INFORMATION
  Report Type: Spontaneous
  Country: US (occurrence: None)
  Receive Date: 20171113
  Receipt Date: 20171113
  Transmission Date: 20180321
  Serious: No
  Sender: FDA-Public Use
  Company Number: None

PATIENT
  Age: 23 Year
  Sex: Female

DRUGS (1)
  1. DUPIXENT [Suspect]
     Active Substance: DUPILUMAB
     Indication: DERMATITIS ATOPIC
     Dosage: 300MG/2ML INJ Q 2 WEEK SUB-Q
     Route: 058
     Dates: start: 20170811, end: 20171003

REACTIONS (3)
  - Hypersensitivity [None]
  - Blindness transient [None]
  - Photophobia [None]

NARRATIVE: CASE EVENT DATE: 20170929
